FAERS Safety Report 4901926-2 (Version None)
Quarter: 2006Q1

REPORT INFORMATION
  Report Type: 
  Country: None (occurrence: None)
  Receive Date: 20060203
  Receipt Date: 20060203
  Transmission Date: 20060701
  Serious: Yes (Death)
  Sender: FDA-Public Use
  Company Number: None

PATIENT
  Age: 67 Year
  Sex: Male
  Weight: 95.709 kg

DRUGS (12)
  1. PANGLOBULIN [Suspect]
     Indication: ANAEMIA HAEMOLYTIC AUTOIMMUNE
     Dosage: 38 GRAMS DAILY IV DRIP
     Route: 041
     Dates: start: 20051009, end: 20051010
  2. CARVIDELOL [Concomitant]
  3. DOBUTAMINE HCL [Concomitant]
  4. K-DUR 10 [Concomitant]
  5. CIPRO [Concomitant]
  6. DOCUASTE [Concomitant]
  7. SIMVASTATIN [Concomitant]
  8. DEXAETHASONE [Concomitant]
  9. ENALAPRIL [Concomitant]
  10. FOLIC ACID [Concomitant]
  11. LASIX [Concomitant]
  12. PANTOPRAZOLE [Concomitant]

REACTIONS (2)
  - ARRHYTHMIA [None]
  - ELECTROCARDIOGRAM T WAVE INVERSION [None]
